FAERS Safety Report 12358643 (Version 1)
Quarter: 2016Q2

REPORT INFORMATION
  Report Type: Spontaneous
  Country: US (occurrence: US)
  Receive Date: 20160512
  Receipt Date: 20160512
  Transmission Date: 20160815
  Serious: No
  Sender: FDA-Public Use
  Company Number: US-ASPEN PHARMA TRADING LIMITED US-AS-2015-006620

PATIENT
  Age: 72 Year
  Sex: Female

DRUGS (1)
  1. LEUKERAN [Suspect]
     Active Substance: CHLORAMBUCIL
     Indication: PRODUCT USED FOR UNKNOWN INDICATION
     Route: 048
     Dates: start: 20150713, end: 20150719

REACTIONS (1)
  - Underdose [Recovered/Resolved]

NARRATIVE: CASE EVENT DATE: 20150713
